APPROVED DRUG PRODUCT: TERCONAZOLE
Active Ingredient: TERCONAZOLE
Strength: 80MG
Dosage Form/Route: SUPPOSITORY;VAGINAL
Application: A077553 | Product #001 | TE Code: AB
Applicant: SUN PHARMA CANADA INC
Approved: Mar 9, 2007 | RLD: No | RS: No | Type: RX